FAERS Safety Report 8198660-5 (Version None)
Quarter: 2012Q1

REPORT INFORMATION
  Report Type: 
  Country: None (occurrence: None)
  Receive Date: 20120309
  Receipt Date: 20120123
  Transmission Date: 20120608
  Serious: No
  Sender: FDA-Public Use
  Company Number: US-AMGEN-USASP2012004600

PATIENT
  Sex: Female

DRUGS (2)
  1. NAPROXEN (ALEVE) [Concomitant]
  2. PROLIA [Suspect]
     Indication: OSTEOPOROSIS POSTMENOPAUSAL
     Dosage: 60 MG, Q6MO
     Dates: start: 20110201

REACTIONS (7)
  - MUSCLE ATROPHY [None]
  - WEIGHT DECREASED [None]
  - MUSCULAR WEAKNESS [None]
  - GAIT DISTURBANCE [None]
  - JOINT INSTABILITY [None]
  - PAIN IN EXTREMITY [None]
  - ARTHRALGIA [None]
